FAERS Safety Report 14917999 (Version 1)
Quarter: 2018Q2

REPORT INFORMATION
  Report Type: Spontaneous
  Country: FR (occurrence: FR)
  Receive Date: 20180521
  Receipt Date: 20180521
  Transmission Date: 20180711
  Serious: Yes (Other)
  Sender: FDA-Public Use
  Company Number: FR-MERCK KGAA-2048112

PATIENT
  Age: 66 Year
  Sex: Female

DRUGS (1)
  1. NOVOTHYROX [Suspect]
     Active Substance: LEVOTHYROXINE SODIUM
     Indication: PRODUCT USED FOR UNKNOWN INDICATION
     Dates: start: 2017, end: 2017

REACTIONS (18)
  - Fatigue [None]
  - Irritability [None]
  - Chest discomfort [Recovered/Resolved]
  - Affective disorder [Recovering/Resolving]
  - Housebound [None]
  - Balance disorder [None]
  - Anxiety [None]
  - Depression [None]
  - Sleep disorder [Recovering/Resolving]
  - Personal relationship issue [None]
  - Hyperthyroidism [Recovering/Resolving]
  - Loss of personal independence in daily activities [None]
  - Social avoidant behaviour [None]
  - Insomnia [None]
  - Psychiatric symptom [None]
  - Mood altered [None]
  - Dizziness [None]
  - Muscle spasms [None]

NARRATIVE: CASE EVENT DATE: 2017
